FAERS Safety Report 24686641 (Version 1)
Quarter: 2024Q4

REPORT INFORMATION
  Report Type: Spontaneous
  Country: US (occurrence: None)
  Receive Date: 20241129
  Receipt Date: 20241129
  Transmission Date: 20250115
  Serious: Yes (Hospitalization)
  Sender: Public
  Company Number: None

PATIENT
  Age: 46 Year
  Sex: Female
  Weight: 62 kg

DRUGS (1)
  1. ISOSULFAN BLUE [Suspect]
     Active Substance: ISOSULFAN BLUE
     Dosage: OTHER FREQUENCY : ONCE;?
     Route: 058
     Dates: start: 20241126, end: 20241126

REACTIONS (2)
  - Hypotension [None]
  - Resuscitation [None]

NARRATIVE: CASE EVENT DATE: 20241126
